FAERS Safety Report 6106442-0 (Version None)
Quarter: 2009Q1

REPORT INFORMATION
  Report Type: 
  Country: None (occurrence: None)
  Receive Date: 20090306
  Receipt Date: 20090224
  Transmission Date: 20090719
  Serious: Yes (Hospitalization)
  Sender: FDA-Public Use
  Company Number: FR-WATSON-2009-00246

PATIENT
  Sex: Male

DRUGS (7)
  1. TRELSTAR LA (WATSON LABORATORIES) [Suspect]
     Indication: PROSTATE CANCER
     Dosage: 11.25 MG SINGLE
     Route: 030
     Dates: start: 20081213, end: 20081213
  2. TRELSTAR LA (WATSON LABORATORIES) [Suspect]
     Dosage: 11.25 MG, Q3MONTHS
     Route: 030
     Dates: start: 20060101
  3. TRELSTAR LA (WATSON LABORATORIES) [Suspect]
     Dosage: 11.25 MG, SINGLE
     Route: 030
     Dates: start: 20081001, end: 20081001
  4. TAREG [Suspect]
     Indication: DRUG USE FOR UNKNOWN INDICATION
     Dosage: UNK
     Route: 065
     Dates: end: 20081231
  5. OGAST [Suspect]
     Indication: DRUG USE FOR UNKNOWN INDICATION
     Dosage: UNK
     Route: 065
     Dates: end: 20081217
  6. AMLOR [Concomitant]
     Indication: DRUG USE FOR UNKNOWN INDICATION
     Dosage: 2 IN 1 D
     Route: 065
  7. VASTAREL [Suspect]
     Indication: DRUG USE FOR UNKNOWN INDICATION
     Dosage: UNK
     Route: 065
     Dates: end: 20081212

REACTIONS (3)
  - INSOMNIA [None]
  - LICHENOID KERATOSIS [None]
  - PRURITUS GENERALISED [None]
